FAERS Safety Report 23898492 (Version 2)
Quarter: 2024Q3

REPORT INFORMATION
  Report Type: Report from Study
  Country: DE (occurrence: DE)
  Receive Date: 20240525
  Receipt Date: 20240926
  Transmission Date: 20241017
  Serious: Yes (Hospitalization)
  Sender: ABBVIE
  Company Number: DE-ABBVIE-5772864

PATIENT
  Age: 73 Year
  Sex: Male

DRUGS (2)
  1. CARBIDOPA\LEVODOPA [Suspect]
     Active Substance: CARBIDOPA\LEVODOPA
     Indication: Parkinson^s disease
     Dosage: MD 5.0 ML; CRD 2.4 ML/H; CRN 1.8 ML/H; ED 2.5 ML
     Route: 050
     Dates: start: 20210311
  2. CARBIDOPA\LEVODOPA [Suspect]
     Active Substance: CARBIDOPA\LEVODOPA
     Dosage: MD:5.0 ML; CRD 2.4 ML/H; CRN: 1.8 ML/H; ED: 1.6ML
     Route: 050

REACTIONS (8)
  - Scratch [Unknown]
  - Fall [Not Recovered/Not Resolved]
  - Intestinal obstruction [Not Recovered/Not Resolved]
  - Constipation [Not Recovered/Not Resolved]
  - Device kink [Not Recovered/Not Resolved]
  - Gastrointestinal motility disorder [Not Recovered/Not Resolved]
  - Thoracic vertebral fracture [Unknown]
  - Device issue [Unknown]

NARRATIVE: CASE EVENT DATE: 20240501
